FAERS Safety Report 13316529 (Version 1)
Quarter: 2017Q1

REPORT INFORMATION
  Report Type: Report from Study
  Country: US (occurrence: US)
  Receive Date: 20170310
  Receipt Date: 20170310
  Transmission Date: 20170428
  Serious: Yes (Other)
  Sender: FDA-Public Use
  Company Number: US-ROCHE-1902493

PATIENT

DRUGS (2)
  1. RIBAVIRIN. [Suspect]
     Active Substance: RIBAVIRIN
     Indication: HEPATITIS C
     Dosage: DOSE: RBV WAS ADMINISTERED ACCORDING TO BODY WEIGHT ({75 KG, 1000 MG DAILY IN 2 DIVIDED DOSES; }75 K
     Route: 065
  2. LEDIPASVIR/SOFOSBUVIR [Suspect]
     Active Substance: LEDIPASVIR\SOFOSBUVIR
     Indication: HEPATITIS C
     Dosage: DOSE: 90/400 MG) ONCE DAILY
     Route: 065

REACTIONS (36)
  - Angina pectoris [Unknown]
  - Dyspnoea [Unknown]
  - Decreased appetite [Unknown]
  - Supraventricular tachycardia [Unknown]
  - Generalised oedema [Unknown]
  - Fatigue [Unknown]
  - Headache [Unknown]
  - Palpitations [Unknown]
  - Infection [Unknown]
  - Acute kidney injury [Unknown]
  - Pyrexia [Unknown]
  - Chronic obstructive pulmonary disease [Unknown]
  - Hepatocellular carcinoma [Unknown]
  - Insomnia [Unknown]
  - Influenza like illness [Unknown]
  - Rash [Unknown]
  - Cough [Unknown]
  - Tachycardia [Unknown]
  - Cardiac flutter [Unknown]
  - Pancytopenia [Unknown]
  - Cholangitis [Unknown]
  - Pruritus [Unknown]
  - Nausea [Unknown]
  - Infestation [Unknown]
  - Myocardial infarction [Unknown]
  - Irritability [Unknown]
  - Diarrhoea [Unknown]
  - Dizziness [Unknown]
  - Gastrointestinal haemorrhage [Unknown]
  - Anaemia [Unknown]
  - Kidney transplant rejection [Unknown]
  - Hyperglycaemia [Unknown]
  - Hepatic encephalopathy [Unknown]
  - Cholelithiasis [Unknown]
  - Jaundice [Unknown]
  - Sinus node dysfunction [Unknown]
